FAERS Safety Report 25022590 (Version 2)
Quarter: 2025Q3

REPORT INFORMATION
  Report Type: Report from Study
  Country: US (occurrence: US)
  Receive Date: 20250228
  Receipt Date: 20250803
  Transmission Date: 20251020
  Serious: Yes (Other)
  Sender: ALEXION PHARMACEUTICALS
  Company Number: US-AstraZeneca-CH-00812363A

PATIENT
  Sex: Male

DRUGS (2)
  1. DAPAGLIFLOZIN [Suspect]
     Active Substance: DAPAGLIFLOZIN
     Indication: Cardiac failure
  2. ENTRESTO [Concomitant]
     Active Substance: SACUBITRIL\VALSARTAN
     Route: 065

REACTIONS (12)
  - Critical illness [Unknown]
  - Blindness [Unknown]
  - Urine odour abnormal [Recovered/Resolved]
  - Feeling abnormal [Unknown]
  - Therapy cessation [Unknown]
  - Tinea cruris [Unknown]
  - Rash [Unknown]
  - Irritability [Unknown]
  - Burning sensation [Unknown]
  - Skin erosion [Unknown]
  - Rash [Unknown]
  - Soliloquy [Unknown]
